FAERS Safety Report 13648292 (Version 1)
Quarter: 2017Q2

REPORT INFORMATION
  Report Type: Spontaneous
  Country: FR (occurrence: FR)
  Receive Date: 20170613
  Receipt Date: 20170613
  Transmission Date: 20170830
  Serious: Yes (Hospitalization, Other)
  Sender: FDA-Public Use
  Company Number: FR-ELI_LILLY_AND_COMPANY-FR201706000727

PATIENT
  Age: 49 Year
  Sex: Female

DRUGS (16)
  1. ALIMTA [Suspect]
     Active Substance: PEMETREXED DISODIUM
     Dosage: 850 MG, UNKNOWN
     Route: 042
     Dates: start: 20170320, end: 20170320
  2. CISPLATINE ACCORD [Suspect]
     Active Substance: CISPLATIN
     Dosage: UNK UNK, UNKNOWN
     Route: 042
     Dates: start: 20160609, end: 20160609
  3. PERIOLIMEL [Concomitant]
     Indication: PRODUCT USED FOR UNKNOWN INDICATION
     Dosage: UNK UNK, UNKNOWN
     Route: 065
  4. FENTANYL. [Concomitant]
     Active Substance: FENTANYL
     Indication: PAIN
     Dosage: UNK UNK, UNKNOWN
     Route: 065
  5. PARAFFIN [Concomitant]
     Active Substance: PARAFFIN
     Indication: PRODUCT USED FOR UNKNOWN INDICATION
     Dosage: UNK UNK, UNKNOWN
     Route: 065
  6. ETOPOSIDE MYLAN [Suspect]
     Active Substance: ETOPOSIDE
     Indication: LUNG ADENOCARCINOMA
     Dosage: UNK UNK, UNKNOWN
     Route: 042
     Dates: start: 20160609, end: 20160609
  7. PANTOPRAZOLE [Concomitant]
     Active Substance: PANTOPRAZOLE
     Indication: GASTRITIS PROPHYLAXIS
     Dosage: UNK UNK, UNKNOWN
     Route: 065
  8. CARBOPLATIN HOSPIRA [Suspect]
     Active Substance: CARBOPLATIN
     Indication: LUNG ADENOCARCINOMA
     Dosage: 565 MG, UNKNOWN
     Route: 042
     Dates: start: 20170320, end: 20170320
  9. ENOXAPARINE SODIQUE [Concomitant]
     Active Substance: ENOXAPARIN SODIUM
     Indication: THROMBOSIS PROPHYLAXIS
     Dosage: UNK UNK, UNKNOWN
     Route: 065
  10. MACROGOL [Concomitant]
     Active Substance: POLYETHYLENE GLYCOLS
     Indication: PRODUCT USED FOR UNKNOWN INDICATION
     Dosage: UNK UNK, UNKNOWN
     Route: 065
  11. ALIMTA [Suspect]
     Active Substance: PEMETREXED DISODIUM
     Indication: LUNG ADENOCARCINOMA
     Dosage: 850 MG, UNKNOWN
     Route: 042
     Dates: start: 2016, end: 2016
  12. SOLUPRED                           /00016201/ [Concomitant]
     Active Substance: PREDNISOLONE
     Indication: LUNG ADENOCARCINOMA
     Dosage: UNK UNK, UNKNOWN
     Route: 065
  13. EMEND [Concomitant]
     Active Substance: APREPITANT
     Indication: PROPHYLAXIS OF NAUSEA AND VOMITING
     Dosage: UNK UNK, UNKNOWN
     Route: 065
  14. CISPLATINE ACCORD [Suspect]
     Active Substance: CISPLATIN
     Indication: LUNG ADENOCARCINOMA
     Dosage: UNK UNK, UNKNOWN
     Route: 042
     Dates: start: 2016, end: 2016
  15. ZOPHREN                            /00955301/ [Concomitant]
     Active Substance: ONDANSETRON
     Indication: PROPHYLAXIS OF NAUSEA AND VOMITING
     Dosage: UNK UNK, UNKNOWN
     Route: 065
  16. METOCLOPRAMIDE. [Concomitant]
     Active Substance: METOCLOPRAMIDE
     Indication: PROPHYLAXIS OF NAUSEA AND VOMITING
     Dosage: UNK UNK, UNKNOWN
     Route: 065

REACTIONS (5)
  - Hepatic fibrosis [Not Recovered/Not Resolved]
  - Off label use [Recovered/Resolved]
  - Malignant neoplasm progression [Unknown]
  - Hepatic fibrosis [Unknown]
  - Device related infection [Unknown]

NARRATIVE: CASE EVENT DATE: 2016
